FAERS Safety Report 6805981-4 (Version None)
Quarter: 2010Q2

REPORT INFORMATION
  Report Type: 
  Country: None (occurrence: None)
  Receive Date: 20100629
  Receipt Date: 20071120
  Transmission Date: 20101027
  Serious: No
  Sender: FDA-Public Use
  Company Number: US-PFIZER INC-2007099642

PATIENT
  Age: 91 Year
  Sex: Male

DRUGS (2)
  1. XANAX [Suspect]
     Indication: SLEEP DISORDER
     Route: 048
     Dates: start: 20051101
  2. ROZEREM [Suspect]
     Dates: start: 20071031, end: 20071101

REACTIONS (4)
  - HEADACHE [None]
  - MIDDLE INSOMNIA [None]
  - NIGHTMARE [None]
  - SOMNOLENCE [None]
